FAERS Safety Report 4984773-5 (Version None)
Quarter: 2006Q2

REPORT INFORMATION
  Report Type: 
  Country: None (occurrence: None)
  Receive Date: 20060427
  Receipt Date: 20060118
  Transmission Date: 20061013
  Serious: Yes (Hospitalization)
  Sender: FDA-Public Use
  Company Number: US-MERCK-0601USA02232

PATIENT
  Sex: Female
  Weight: 85 kg

DRUGS (4)
  1. VIOXX [Suspect]
     Indication: ARTHRITIS
     Route: 048
     Dates: start: 19990101, end: 20040101
  2. DIOVAN [Concomitant]
     Route: 065
  3. NEURONTIN [Concomitant]
     Route: 065
  4. BEXTRA [Concomitant]
     Route: 065

REACTIONS (15)
  - ARTERIOSCLEROSIS [None]
  - DEPRESSION [None]
  - DRUG HYPERSENSITIVITY [None]
  - DYSPHAGIA [None]
  - FOOT FRACTURE [None]
  - HYPERTENSION [None]
  - INTERVERTEBRAL DISC DEGENERATION [None]
  - LIVER DISORDER [None]
  - OPTIC NEURITIS [None]
  - PALPITATIONS [None]
  - RENAL CYST [None]
  - SPINAL DISORDER [None]
  - THROMBOSIS [None]
  - TRANSIENT ISCHAEMIC ATTACK [None]
  - VASCULITIS CEREBRAL [None]
